FAERS Safety Report 7735203-1 (Version None)
Quarter: 2011Q3

REPORT INFORMATION
  Report Type: 
  Country: None (occurrence: None)
  Receive Date: 20110907
  Receipt Date: 20110831
  Transmission Date: 20111222
  Serious: Yes (Other)
  Sender: FDA-Public Use
  Company Number: CHPA2011US11818

PATIENT
  Age: 58 Year
  Sex: Male

DRUGS (1)
  1. GAS-X CHEWABLE TABLETS UNKNOWN [Suspect]
     Indication: FLATULENCE
     Dosage: 4-6 PER DAY
     Route: 048

REACTIONS (2)
  - WHEEZING [None]
  - INCORRECT DRUG ADMINISTRATION DURATION [None]
